FAERS Safety Report 8174882-4 (Version None)
Quarter: 2012Q1

REPORT INFORMATION
  Report Type: 
  Country: None (occurrence: None)
  Receive Date: 20120229
  Receipt Date: 20110412
  Transmission Date: 20120608
  Serious: No
  Sender: FDA-Public Use
  Company Number: US-GLAXOSMITHKLINE-A0923424A

PATIENT
  Age: 73 Year
  Sex: Male
  Weight: 68.2 kg

DRUGS (10)
  1. HYDROCODONE BITARTRATE AND ACETAMINOPHEN [Concomitant]
     Indication: PAIN
     Route: 048
  2. ACETAMINOPHEN [Concomitant]
     Indication: PAIN
     Route: 048
  3. VALTREX [Suspect]
     Indication: BLISTER
     Dosage: 500MG PER DAY
     Route: 048
     Dates: start: 20110201
  4. OXYCODONE HCL [Suspect]
     Indication: PAIN
     Dosage: 20MG PER DAY
     Route: 048
     Dates: end: 20110301
  5. POTASSIUM CHLORIDE [Concomitant]
     Dosage: 20MEQ PER DAY
  6. LYRICA [Suspect]
     Indication: PARAESTHESIA
     Dosage: 75MG TWICE PER DAY
     Route: 048
     Dates: start: 20100601
  7. AMLODIPINE [Concomitant]
     Indication: BLOOD PRESSURE ABNORMAL
     Dosage: 5MG PER DAY
     Route: 048
  8. SYNTHROID [Concomitant]
     Indication: BLOOD PRESSURE ABNORMAL
     Dosage: 137MCG PER DAY
     Route: 048
  9. VITAMIN TAB [Concomitant]
     Indication: PAIN
  10. LISINOPRIL AND HYDROCHLOROTHIAZIDE [Concomitant]
     Indication: BLOOD PRESSURE ABNORMAL
     Route: 048

REACTIONS (15)
  - HERPES ZOSTER [None]
  - PAIN [None]
  - DISTURBANCE IN ATTENTION [None]
  - SOMNOLENCE [None]
  - MENTAL IMPAIRMENT [None]
  - VISUAL IMPAIRMENT [None]
  - READING DISORDER [None]
  - SPEECH DISORDER [None]
  - HERPES VIRUS INFECTION [None]
  - BLISTER [None]
  - POST HERPETIC NEURALGIA [None]
  - CONSTIPATION [None]
  - AGITATION [None]
  - HYPOAESTHESIA [None]
  - ASTHENOPIA [None]
